FAERS Safety Report 4381724-1 (Version None)
Quarter: 2004Q2

REPORT INFORMATION
  Report Type: 
  Country: None (occurrence: None)
  Receive Date: 20040615
  Receipt Date: 20040603
  Transmission Date: 20050107
  Serious: Yes (Death)
  Sender: FDA-Public Use
  Company Number: US-JNJFOC-20040302195

PATIENT
  Age: 68 Year
  Sex: Female

DRUGS (16)
  1. DITROPAN XL [Suspect]
     Indication: POLLAKIURIA
     Dosage: 15 MG, 1 IN 1 DAY, ORAL : 15 MG, 2 IN 1 DAY, ORAL
     Route: 048
     Dates: end: 20040306
  2. DITROPAN XL [Suspect]
     Indication: POLLAKIURIA
     Dosage: 15 MG, 1 IN 1 DAY, ORAL : 15 MG, 2 IN 1 DAY, ORAL
     Route: 048
     Dates: start: 20030801
  3. RILUTEK [Concomitant]
  4. BACLOFEN [Concomitant]
  5. ZOLOFT [Concomitant]
  6. AMBIEN [Concomitant]
  7. SINGULAR (MONTELUKAST SODIUM) [Concomitant]
  8. ACTOL (NIFLUMIC ACID) [Concomitant]
  9. LACTULOSE [Concomitant]
  10. DARVON N (DEXTROPROPOXYPHENE HYDROCHLORIDE) [Concomitant]
  11. IBUPROFEN [Concomitant]
  12. ORAGESICS (ALL OTHER THERAPEUTIC PRODUCTS) [Concomitant]
  13. LORAZEPAM [Concomitant]
  14. ROXANOL (MORPHINE SULFATE) [Concomitant]
  15. NEURONTIN [Concomitant]
  16. ZITHROMAX [Concomitant]

REACTIONS (4)
  - DRY MOUTH [None]
  - POLLAKIURIA [None]
  - RESPIRATORY ARREST [None]
  - RESPIRATORY FAILURE [None]
